FAERS Safety Report 17165530 (Version 2)
Quarter: 2019Q4

REPORT INFORMATION
  Report Type: Spontaneous
  Country: US (occurrence: US)
  Receive Date: 20191217
  Receipt Date: 20191220
  Transmission Date: 20200122
  Serious: No
  Sender: FDA-Public Use
  Company Number: US-SLATE RUN PHARMACEUTICALS-SLTR-AE-19-121

PATIENT
  Age: 62 Year
  Sex: Female

DRUGS (1)
  1. POTASSIUM CHLORIDE ER TABLET USP [Suspect]
     Active Substance: POTASSIUM CHLORIDE
     Indication: HYPOKALAEMIA

REACTIONS (5)
  - Abdominal pain [Recovered/Resolved]
  - Abdominal rigidity [Recovered/Resolved]
  - Nausea [Recovered/Resolved]
  - Pancreatic enzymes increased [Unknown]
  - Product substitution issue [None]

NARRATIVE: CASE EVENT DATE: 20191013
